FAERS Safety Report 15633723 (Version 1)
Quarter: 2018Q4

REPORT INFORMATION
  Report Type: Spontaneous
  Country: US (occurrence: US)
  Receive Date: 20181119
  Receipt Date: 20181119
  Transmission Date: 20190205
  Serious: No
  Sender: FDA-Public Use
  Company Number: US-SA-2018SA316127

PATIENT
  Age: 75 Year
  Sex: Male

DRUGS (1)
  1. AVALIDE [Suspect]
     Active Substance: HYDROCHLOROTHIAZIDE\IRBESARTAN
     Indication: HYPERTENSION
     Dosage: 150MG/12.5MG, 5 OR 6 YEARS AGO, END DATE: MAY-2018

REACTIONS (1)
  - Gout [Not Recovered/Not Resolved]
